FAERS Safety Report 16907921 (Version 15)
Quarter: 2021Q4

REPORT INFORMATION
  Report Type: Report from Study
  Country: None (occurrence: IL)
  Receive Date: 20191011
  Receipt Date: 20211007
  Transmission Date: 20220303
  Serious: Yes (Death, Life-Threatening, Hospitalization, Other)
  Sender: FDA-Public Use
  Company Number: IL-ABBVIE-19K-082-2955109-00

PATIENT
  Age: 59 Year
  Sex: Male
  Weight: 73 kg

DRUGS (38)
  1. IMBRUVICA [Suspect]
     Active Substance: IBRUTINIB
     Indication: Product used for unknown indication
     Route: 065
     Dates: start: 20190926, end: 20190930
  2. IMBRUVICA [Suspect]
     Active Substance: IBRUTINIB
     Route: 048
     Dates: start: 20190912, end: 20190923
  3. VENETOCLAX [Suspect]
     Active Substance: VENETOCLAX
     Indication: Chronic lymphocytic leukaemia
     Route: 048
     Dates: start: 20190923, end: 20190929
  4. VENETOCLAX [Suspect]
     Active Substance: VENETOCLAX
     Route: 048
     Dates: start: 20190926, end: 20190930
  5. VENETOCLAX [Suspect]
     Active Substance: VENETOCLAX
     Route: 048
     Dates: start: 20191009, end: 20191016
  6. VENETOCLAX [Suspect]
     Active Substance: VENETOCLAX
     Route: 048
     Dates: start: 20191016, end: 20191022
  7. VENETOCLAX [Suspect]
     Active Substance: VENETOCLAX
     Route: 048
     Dates: start: 20191024, end: 20191030
  8. VENETOCLAX [Suspect]
     Active Substance: VENETOCLAX
     Route: 048
     Dates: start: 20190930, end: 20191008
  9. VENETOCLAX [Suspect]
     Active Substance: VENETOCLAX
     Route: 048
     Dates: start: 20191017, end: 20191031
  10. VENETOCLAX [Suspect]
     Active Substance: VENETOCLAX
     Route: 048
     Dates: start: 20191101
  11. BISOPROLOL FUMARATE [Concomitant]
     Active Substance: BISOPROLOL FUMARATE
     Indication: Hypertension
     Dates: start: 20181029, end: 20191117
  12. ATORVASTATIN CALCIUM [Concomitant]
     Active Substance: ATORVASTATIN CALCIUM
     Indication: Blood cholesterol
     Dates: start: 20090115
  13. OMEPRAZOLE [Concomitant]
     Active Substance: OMEPRAZOLE
     Indication: Gastric pH decreased
     Dates: start: 20190808, end: 20191117
  14. OMEPRAZOLE [Concomitant]
     Active Substance: OMEPRAZOLE
     Indication: Antacid therapy
  15. UNSPECIFIED INGREDIENT [Concomitant]
     Active Substance: UNSPECIFIED INGREDIENT
     Indication: Prophylaxis
     Route: 048
     Dates: start: 20190923
  16. UNSPECIFIED INGREDIENT [Concomitant]
     Active Substance: UNSPECIFIED INGREDIENT
     Route: 042
     Dates: start: 20190923
  17. ALLOPURINOL [Concomitant]
     Active Substance: ALLOPURINOL
     Indication: Prophylaxis
     Route: 048
     Dates: start: 20190514, end: 20191117
  18. ALLOPURINOL [Concomitant]
     Active Substance: ALLOPURINOL
     Dates: start: 20180514, end: 20191117
  19. ALLOPURINOL [Concomitant]
     Active Substance: ALLOPURINOL
     Dates: start: 20180515
  20. ESCITALOPRAM [Concomitant]
     Active Substance: ESCITALOPRAM OXALATE
     Indication: Anxiety
     Route: 048
     Dates: start: 20180828, end: 20191117
  21. AMLODIPINE [Concomitant]
     Active Substance: AMLODIPINE BESYLATE
     Indication: Hypertension
     Dates: start: 20190822, end: 20191031
  22. LIPITOR [Concomitant]
     Active Substance: ATORVASTATIN CALCIUM
     Indication: Blood cholesterol
     Route: 048
     Dates: start: 20090115, end: 20191117
  23. LIPITOR [Concomitant]
     Active Substance: ATORVASTATIN CALCIUM
     Indication: Hyperlipidaemia
  24. PLAVIX [Concomitant]
     Active Substance: CLOPIDOGREL BISULFATE
     Indication: Cerebrovascular accident
     Dates: start: 20190815, end: 20191117
  25. VALSARTAN PO [Concomitant]
     Indication: Hypertension
     Route: 048
     Dates: start: 20190822, end: 20191117
  26. PREDNISONE [Concomitant]
     Active Substance: PREDNISONE
     Indication: Inflammatory marker test
     Dates: start: 20190808, end: 20191030
  27. NEUPOGEN [Concomitant]
     Active Substance: FILGRASTIM
     Indication: Full blood count abnormal
     Dates: start: 20191016, end: 20191016
  28. EXFORGE [Concomitant]
     Active Substance: AMLODIPINE BESYLATE\VALSARTAN
     Indication: Hypertension
     Route: 048
     Dates: start: 20191004, end: 20191117
  29. FOLIC ACID [Concomitant]
     Active Substance: FOLIC ACID
     Indication: Vitamin supplementation
     Route: 048
     Dates: start: 20180723, end: 20191117
  30. FOLIC ACID [Concomitant]
     Active Substance: FOLIC ACID
     Indication: Autoimmune haemolytic anaemia
  31. AREDIA [Concomitant]
     Active Substance: PAMIDRONATE DISODIUM
     Indication: Prophylaxis
     Route: 048
     Dates: start: 20190918, end: 20191117
  32. KEYTRUDA [Concomitant]
     Active Substance: PEMBROLIZUMAB
     Indication: Product used for unknown indication
     Dates: start: 20191103, end: 20191117
  33. CARBOPLATIN W/TAXOL [Concomitant]
     Indication: Product used for unknown indication
     Dates: start: 20191103, end: 20191117
  34. CADEX [Concomitant]
     Indication: Hypertension
     Dates: start: 20190923, end: 20190923
  35. SLOW K [Concomitant]
     Active Substance: POTASSIUM CHLORIDE
     Indication: Hypokalaemia
     Dates: start: 20190926, end: 20190928
  36. NORMOPRESAN [Concomitant]
     Indication: Hypertension
     Dates: start: 20190923, end: 20190923
  37. FUSID [Concomitant]
     Indication: Hypertension
     Dates: start: 20190923, end: 20190923
  38. CONTROLOC [Concomitant]
     Active Substance: PANTOPRAZOLE SODIUM
     Indication: Prophylaxis against gastrointestinal ulcer
     Dates: start: 20190219, end: 20191030

REACTIONS (10)
  - Respiratory failure [Fatal]
  - Neutropenia [Fatal]
  - Hypogammaglobulinaemia [Unknown]
  - Tumour lysis syndrome [Not Recovered/Not Resolved]
  - Pneumonia [Recovered/Resolved]
  - Bone pain [Recovered/Resolved]
  - Chronic lymphocytic leukaemia [Unknown]
  - Pyrexia [Not Recovered/Not Resolved]
  - Septic shock [Not Recovered/Not Resolved]
  - Pneumonia [Unknown]

NARRATIVE: CASE EVENT DATE: 20190101
